FAERS Safety Report 5704008-5 (Version None)
Quarter: 2008Q2

REPORT INFORMATION
  Report Type: 
  Country: None (occurrence: None)
  Receive Date: 20080414
  Receipt Date: 20080401
  Transmission Date: 20081010
  Serious: Yes (Other)
  Sender: FDA-Public Use
  Company Number: US-NOVOPROD-273624

PATIENT
  Age: 58 Year
  Sex: Female
  Weight: 97.052 kg

DRUGS (5)
  1. NOVOLOG MIX 70/30 [Suspect]
     Indication: INSULIN-REQUIRING TYPE 2 DIABETES MELLITUS
     Dosage: 14 IU, BID
     Route: 058
     Dates: start: 20080101
  2. CRESTOR [Concomitant]
     Indication: BLOOD CHOLESTEROL INCREASED
     Dosage: 10 MG, QD
     Route: 048
  3. VALTREX [Concomitant]
     Indication: HERPES ZOSTER
     Dosage: 2-3 TIMES PER WEEK, PRN
     Route: 048
  4. M.V.I. [Concomitant]
     Indication: VITAMIN SUPPLEMENTATION
     Dosage: 1 TAB, QD
     Route: 048
     Dates: start: 20080201
  5. VITAMIN D [Concomitant]
     Indication: VITAMIN SUPPLEMENTATION
     Dosage: 1 TAB, UNK 1- 2 TIMES/DAY
     Route: 048
     Dates: start: 20080201

REACTIONS (4)
  - EYE PRURITUS [None]
  - EYELID OEDEMA [None]
  - INJECTION SITE IRRITATION [None]
  - URTICARIA [None]
